FAERS Safety Report 5610650-2 (Version None)
Quarter: 2008Q1

REPORT INFORMATION
  Report Type: 
  Country: None (occurrence: None)
  Receive Date: 20080128
  Receipt Date: 20080115
  Transmission Date: 20080703
  Serious: Yes (Hospitalization)
  Sender: FDA-Public Use
  Company Number: 023072

PATIENT
  Age: 71 Year
  Sex: Female

DRUGS (3)
  1. CARBOPLATIN [Suspect]
     Indication: OVARIAN EPITHELIAL CANCER
  2. PACLITAXEL [Suspect]
     Indication: OVARIAN EPITHELIAL CANCER
     Dosage: 175 MG/M2
  3. DEXAMETHASONE TAB [Suspect]
     Indication: OVARIAN EPITHELIAL CANCER
     Dosage: 20 MG THE NIGHT PRIOR TO CHEMO 20 MG THE MORNING OF CHEMO 8 MG, QD X3 DAYS FOLLOWING CHEMO

REACTIONS (12)
  - ASTHENIA [None]
  - GASTROINTESTINAL TOXICITY [None]
  - HYPOTENSION [None]
  - INTESTINAL PERFORATION [None]
  - MULTI-ORGAN FAILURE [None]
  - NEUTROPENIA [None]
  - POST PROCEDURAL COMPLICATION [None]
  - POST PROCEDURAL SEPSIS [None]
  - TACHYCARDIA [None]
  - TUMOUR LYSIS SYNDROME [None]
  - TUMOUR NECROSIS [None]
  - WHITE BLOOD CELL COUNT DECREASED [None]
